FAERS Safety Report 7634627-0 (Version None)
Quarter: 2011Q3

REPORT INFORMATION
  Report Type: 
  Country: None (occurrence: None)
  Receive Date: 20110725
  Receipt Date: 20110720
  Transmission Date: 20111222
  Serious: Yes (Hospitalization, Disabling)
  Sender: FDA-Public Use
  Company Number: US-MERCK-1107USA02760

PATIENT
  Age: 50 Year
  Sex: Female

DRUGS (2)
  1. ISENTRESS [Suspect]
     Indication: HIV INFECTION
     Route: 048
     Dates: start: 20110101, end: 20110101
  2. TRUVADA [Concomitant]
     Route: 065

REACTIONS (4)
  - HOMICIDAL IDEATION [None]
  - MENTAL DISORDER [None]
  - PNEUMONIA [None]
  - MOOD SWINGS [None]
